FAERS Safety Report 21162700 (Version 1)
Quarter: 2022Q3

REPORT INFORMATION
  Report Type: Spontaneous
  Country: KR (occurrence: KR)
  Receive Date: 20220802
  Receipt Date: 20220802
  Transmission Date: 20221027
  Serious: Yes (Other)
  Sender: FDA-Public Use
  Company Number: KR-ELI_LILLY_AND_COMPANY-KR202207013512

PATIENT
  Age: 60 Year
  Sex: Female

DRUGS (4)
  1. CYMBALTA [Suspect]
     Active Substance: DULOXETINE HYDROCHLORIDE
     Indication: Spinal stenosis
     Dosage: 30 MG, DAILY
     Route: 048
     Dates: start: 20180720
  2. ACETAMINOPHEN [Concomitant]
     Active Substance: ACETAMINOPHEN
     Indication: Spinal stenosis
     Dosage: UNK
     Route: 048
     Dates: start: 20180720
  3. IBUPROFEN [Concomitant]
     Active Substance: IBUPROFEN
     Indication: Spinal stenosis
     Dosage: UNK
     Route: 048
     Dates: start: 20180720
  4. CODEINE PHOSPHATE [Concomitant]
     Active Substance: CODEINE PHOSPHATE
     Indication: Spinal stenosis
     Dosage: UNK
     Route: 048
     Dates: start: 20180720

REACTIONS (4)
  - Angioedema [Recovered/Resolved]
  - Pruritus [Recovered/Resolved]
  - Rash [Recovered/Resolved]
  - Off label use [Unknown]

NARRATIVE: CASE EVENT DATE: 20180730
